FAERS Safety Report 19063300 (Version 2)
Quarter: 2022Q3

REPORT INFORMATION
  Report Type: Report from Study
  Country: CA (occurrence: CA)
  Receive Date: 20210326
  Receipt Date: 20220923
  Transmission Date: 20221026
  Serious: Yes (Death)
  Sender: FDA-Public Use
  Company Number: CA-MYLANLABS-2021M1017314

PATIENT
  Sex: Female
  Weight: 65.4 kg

DRUGS (1)
  1. TRASTUZUMAB [Suspect]
     Active Substance: TRASTUZUMAB
     Indication: Product used for unknown indication
     Dosage: UNK UNK, Q3W  (Q3 WEEKS)
     Route: 065
     Dates: start: 20210216

REACTIONS (1)
  - Death [Fatal]
